FAERS Safety Report 19134236 (Version 1)
Quarter: 2021Q2

REPORT INFORMATION
  Report Type: Spontaneous
  Country: FR (occurrence: FR)
  Receive Date: 20210414
  Receipt Date: 20210414
  Transmission Date: 20210717
  Serious: Yes (Other)
  Sender: FDA-Public Use
  Company Number: FR-SA-2021SA120748

PATIENT
  Age: 15 Year
  Sex: Male
  Weight: 59 kg

DRUGS (1)
  1. DUPIXENT [Suspect]
     Active Substance: DUPILUMAB
     Indication: DERMATITIS ATOPIC
     Dosage: 200 MG, Q15D

REACTIONS (2)
  - Herpes ophthalmic [Unknown]
  - Product use issue [Unknown]

NARRATIVE: CASE EVENT DATE: 202104
